FAERS Safety Report 9420320 (Version 1)
Quarter: 2013Q3

REPORT INFORMATION
  Report Type: Spontaneous
  Country: US (occurrence: US)
  Receive Date: 20130725
  Receipt Date: 20130725
  Transmission Date: 20140515
  Serious: No
  Sender: FDA-Public Use
  Company Number: US-ABBOTT-13P-163-1081136-00

PATIENT
  Age: 40 Year
  Sex: Female

DRUGS (3)
  1. SYNTHROID [Suspect]
     Indication: HYPOTHYROIDISM
     Dates: start: 201112, end: 20130421
  2. SYNTHROID [Suspect]
     Dates: start: 20130422
  3. PROAIR [Concomitant]
     Indication: ASTHMA

REACTIONS (4)
  - Product quality issue [Unknown]
  - Tremor [Recovered/Resolved]
  - Anxiety [Recovered/Resolved]
  - Nervousness [Recovered/Resolved]
